FAERS Safety Report 14240800 (Version 2)
Quarter: 2018Q1

REPORT INFORMATION
  Report Type: Report from Study
  Country: US (occurrence: US)
  Receive Date: 20171130
  Receipt Date: 20180322
  Transmission Date: 20180508
  Serious: Yes (Other)
  Sender: FDA-Public Use
  Company Number: US-MALLINCKRODT-T201704440

PATIENT
  Age: 72 Year
  Sex: Female
  Weight: 108 kg

DRUGS (3)
  1. REPOSITORY CORTICOTROPIN INJECTION [Suspect]
     Active Substance: CORTICOTROPIN
     Indication: OCULAR PEMPHIGOID
     Dosage: 80 UNITS/ML, TWICE A WEEK
     Route: 030
     Dates: start: 20170728
  2. REPOSITORY CORTICOTROPIN INJECTION [Suspect]
     Active Substance: CORTICOTROPIN
     Indication: MULTIPLE SCLEROSIS
     Dosage: 80 UNITS/ML, TWICE A WEEK (BIW)
     Route: 058
     Dates: start: 20170919
  3. GABAPENTIN. [Concomitant]
     Active Substance: GABAPENTIN
     Indication: NEUROPATHY PERIPHERAL
     Dosage: 80 UNITS/ML, TWICE A WEEK
     Route: 030

REACTIONS (14)
  - Weight increased [Unknown]
  - Peripheral swelling [Unknown]
  - Dizziness [Unknown]
  - Dry skin [Unknown]
  - Insomnia [Unknown]
  - Rash [Unknown]
  - Eating disorder [Unknown]
  - Fluid retention [Not Recovered/Not Resolved]
  - Swelling face [Unknown]
  - Hypersomnia [Unknown]
  - Alopecia [Unknown]
  - Depression [Unknown]
  - Apparent death [Unknown]
  - Fatigue [Unknown]

NARRATIVE: CASE EVENT DATE: 20171025
